FAERS Safety Report 8621830-6 (Version None)
Quarter: 2012Q3

REPORT INFORMATION
  Report Type: 
  Country: None (occurrence: None)
  Receive Date: 20120821
  Receipt Date: 20120821
  Transmission Date: 20120928
  Serious: Yes (Other)
  Sender: FDA-Public Use
  Company Number: None

PATIENT
  Age: 54 Year
  Sex: Female
  Weight: 65.7716 kg

DRUGS (1)
  1. AVONEX [Suspect]
     Indication: MULTIPLE SCLEROSIS
     Dosage: 30 MCG DOSE WEEKLY IM
     Route: 030
     Dates: start: 20100115, end: 20100415

REACTIONS (4)
  - INFLUENZA LIKE ILLNESS [None]
  - BLADDER SPASM [None]
  - URINARY TRACT INFECTION [None]
  - TRANSITIONAL CELL CARCINOMA [None]
